FAERS Safety Report 5300946-6 (Version None)
Quarter: 2007Q1

REPORT INFORMATION
  Report Type: 
  Country: None (occurrence: None)
  Receive Date: 20070208
  Receipt Date: 20060718
  Transmission Date: 20070707
  Serious: Yes (Other)
  Sender: FDA-Public Use
  Company Number: PROG00206002322

PATIENT
  Sex: Female

DRUGS (15)
  1. PROMETRIUM [Suspect]
     Indication: HORMONE REPLACEMENT THERAPY
     Dosage: DAILY ORAL
     Route: 048
  2. PROMETRIUM [Suspect]
     Indication: ILL-DEFINED DISORDER
     Dosage: DAILY ORAL
     Route: 048
  3. CURRETAS (MEDROXYPROGESTERONE ACETATE) [Suspect]
     Indication: HORMONE REPLACEMENT THERAPY
  4. CURRETAS (MEDROXYPROGESTERONE ACETATE) [Suspect]
     Indication: ILL-DEFINED DISORDER
  5. PREMPRO [Suspect]
     Indication: HORMONE REPLACEMENT THERAPY
     Dosage: DAILY ORAL
     Route: 048
  6. PREMPRO [Suspect]
     Indication: ILL-DEFINED DISORDER
     Dosage: DAILY ORAL
     Route: 048
  7. ORTHO-EST [Suspect]
     Indication: HORMONE REPLACEMENT THERAPY
     Dosage: DAILY ORAL
     Route: 048
  8. ORTHO-EST [Suspect]
     Indication: ILL-DEFINED DISORDER
     Dosage: DAILY ORAL
     Route: 048
  9. ORTHO-EST [Suspect]
     Indication: MENOPAUSAL SYMPTOMS
     Dosage: DAILY ORAL
     Route: 048
  10. ESTROPIPATE [Suspect]
     Indication: HORMONE REPLACEMENT THERAPY
     Dosage: DAILY ORAL
     Route: 048
  11. ESTROPIPATE [Suspect]
     Indication: ILL-DEFINED DISORDER
     Dosage: DAILY ORAL
     Route: 048
  12. ESTROPIPATE [Suspect]
     Indication: MENOPAUSAL SYMPTOMS
     Dosage: DAILY ORAL
     Route: 048
  13. ACTIVELLA [Suspect]
     Indication: HORMONE REPLACEMENT THERAPY
     Dosage: DAILY ORAL
     Route: 048
  14. ACTIVELLA [Suspect]
     Indication: ILL-DEFINED DISORDER
     Dosage: DAILY ORAL
     Route: 048
  15. ACTIVELLA [Suspect]
     Indication: MENOPAUSAL SYMPTOMS
     Dosage: DAILY ORAL
     Route: 048

REACTIONS (1)
  - BREAST CANCER METASTATIC [None]
